FAERS Safety Report 6421852-X (Version None)
Quarter: 2009Q4

REPORT INFORMATION
  Report Type: 
  Country: None (occurrence: None)
  Receive Date: 20091030
  Receipt Date: 20091022
  Transmission Date: 20100525
  Serious: Yes (Death, Hospitalization)
  Sender: FDA-Public Use
  Company Number: BE-ABBOTT-09P-013-0604344-00

PATIENT
  Sex: Male
  Weight: 86 kg

DRUGS (1)
  1. LUCRIN TRIDEPOT [Suspect]
     Indication: PROSTATE CANCER
     Dates: start: 20070124

REACTIONS (1)
  - CARDIAC OPERATION [None]
